FAERS Safety Report 5972569-7 (Version None)
Quarter: 2008Q4

REPORT INFORMATION
  Report Type: 
  Country: None (occurrence: None)
  Receive Date: 20081201
  Receipt Date: 20081124
  Transmission Date: 20090506
  Serious: Yes (Life-Threatening)
  Sender: FDA-Public Use
  Company Number: D0059596A

PATIENT
  Age: 49 Year
  Sex: Female
  Weight: 68 kg

DRUGS (3)
  1. AVANDIA [Suspect]
     Dosage: 2MG PER DAY
     Route: 048
     Dates: start: 20051201, end: 20081001
  2. FLUPIRTIN [Suspect]
     Indication: FIBROMYALGIA
     Dosage: 5MG PER DAY
     Route: 048
     Dates: start: 20080801, end: 20081001
  3. SIMVASTATIN [Concomitant]
     Dosage: 20MG PER DAY
     Route: 048
     Dates: start: 20050101, end: 20081001

REACTIONS (1)
  - HEPATITIS TOXIC [None]
